FAERS Safety Report 5763703-2 (Version None)
Quarter: 2008Q2

REPORT INFORMATION
  Report Type: 
  Country: None (occurrence: None)
  Receive Date: 20080529
  Receipt Date: 20080206
  Transmission Date: 20081010
  Serious: Yes (Other)
  Sender: FDA-Public Use
  Company Number: US-JNJFOC-20080201366

PATIENT
  Age: 75 Year
  Sex: Male

DRUGS (9)
  1. DACOGEN [Suspect]
     Indication: MYELODYSPLASTIC SYNDROME
     Dosage: 20 MG/M2, INTRAVENOUS
     Route: 042
     Dates: start: 20071211, end: 20071215
  2. PREDNISONE (PREDNISONE) UNSPECIFIED [Concomitant]
  3. CLINDAMYCIN (CLINDAMYCIN) OINTMENT [Concomitant]
  4. HYDROCORTISONE (HYDROCORTISONE) OINTMENT [Concomitant]
  5. ATARAX [Concomitant]
  6. HALOBETASOL (ALL OTHER THERAPEUTIC PRODUCTS) UNSPECIFIED [Concomitant]
  7. COREG (CARVEDILOL) UNSPECIFIED [Concomitant]
  8. COENZYME Q (UBIDECARENONE) UNSPECIFIED [Concomitant]
  9. AVAPRO (IRBESARTAN) UNSPECIFIED [Concomitant]

REACTIONS (2)
  - HERPES ZOSTER [None]
  - RASH [None]
